FAERS Safety Report 9781845 (Version 2)
Quarter: 2015Q4

REPORT INFORMATION
  Report Type: Report from Study
  Country: US (occurrence: US)
  Receive Date: 20131225
  Receipt Date: 20151110
  Transmission Date: 20160305
  Serious: Yes (Other)
  Sender: FDA-Public Use
  Company Number: US-ROCHE-1324118

PATIENT
  Age: 78 Year
  Sex: Female

DRUGS (5)
  1. LUCENTIS [Suspect]
     Active Substance: RANIBIZUMAB
     Indication: MACULAR DEGENERATION
     Dosage: BOTH EYES
     Route: 050
     Dates: start: 20131216
  2. SYNTHROID [Concomitant]
     Active Substance: LEVOTHYROXINE SODIUM
     Dosage: LOW DOSE
     Route: 065
  3. LANTUS [Concomitant]
     Active Substance: INSULIN GLARGINE
     Indication: DIABETES MELLITUS
     Dosage: TAKE IN THE MORNING AFTER BREAKFAST
     Route: 065
  4. LOTEMAX [Concomitant]
     Active Substance: LOTEPREDNOL ETABONATE
     Route: 047
  5. TIMOLOL. [Concomitant]
     Active Substance: TIMOLOL
     Dosage: HELPS REDUCE PRESSURE FROM LOTEMAX
     Route: 047

REACTIONS (3)
  - Blindness [Recovered/Resolved]
  - Discomfort [Recovered/Resolved]
  - Extraocular muscle paresis [Recovered/Resolved]

NARRATIVE: CASE EVENT DATE: 20131216
